FAERS Safety Report 7229450-5 (Version None)
Quarter: 2011Q1

REPORT INFORMATION
  Report Type: 
  Country: None (occurrence: None)
  Receive Date: 20110117
  Receipt Date: 20110112
  Transmission Date: 20110831
  Serious: Yes (Other)
  Sender: FDA-Public Use
  Company Number: B0693758A

PATIENT
  Age: 8 Year
  Sex: Male
  Weight: 24 kg

DRUGS (1)
  1. ZINNAT [Suspect]
     Indication: SCARLET FEVER
     Dosage: 250MG TWICE PER DAY
     Route: 048
     Dates: start: 20101109, end: 20101111

REACTIONS (3)
  - PSYCHOTIC DISORDER [None]
  - CEREBRAL DISORDER [None]
  - AGGRESSION [None]
